FAERS Safety Report 11825277 (Version 2)
Quarter: 2016Q1

REPORT INFORMATION
  Report Type: Spontaneous
  Country: US (occurrence: US)
  Receive Date: 20151211
  Receipt Date: 20160114
  Transmission Date: 20160525
  Serious: No
  Sender: FDA-Public Use
  Company Number: ALCN2015US007528

PATIENT
  Sex: Male

DRUGS (1)
  1. SYSTANE BALANCE [Suspect]
     Active Substance: PROPYLENE GLYCOL
     Indication: PRODUCT USED FOR UNKNOWN INDICATION
     Dosage: 1 GTT, BID
     Route: 047
     Dates: start: 201510, end: 201511

REACTIONS (1)
  - Medication residue present [Recovered/Resolved]
